FAERS Safety Report 5319421-8 (Version None)
Quarter: 2007Q2

REPORT INFORMATION
  Report Type: 
  Country: None (occurrence: None)
  Receive Date: 20070508
  Receipt Date: 20070426
  Transmission Date: 20071010
  Serious: Yes (Other)
  Sender: FDA-Public Use
  Company Number: US-PFIZER INC-2007020460

PATIENT
  Sex: Female

DRUGS (10)
  1. CHANTIX [Suspect]
     Dates: start: 20070312, end: 20070401
  2. DILTIAZEM [Concomitant]
  3. BENICAR [Concomitant]
  4. POTASSIUM ACETATE [Concomitant]
  5. NEXIUM [Concomitant]
  6. ALL OTHER THERAPEUTIC PRODUCTS [Concomitant]
  7. CLONIDINE [Concomitant]
  8. CALCIUM CHLORIDE [Concomitant]
  9. VITAMINS [Concomitant]
  10. EVISTA [Concomitant]

REACTIONS (9)
  - DIZZINESS [None]
  - FEELING DRUNK [None]
  - GAIT DISTURBANCE [None]
  - HYPERSOMNIA [None]
  - MEMORY IMPAIRMENT [None]
  - MUSCULAR WEAKNESS [None]
  - NAUSEA [None]
  - PERFORMANCE STATUS DECREASED [None]
  - SOMNOLENCE [None]
